FAERS Safety Report 5384210-5 (Version None)
Quarter: 2007Q3

REPORT INFORMATION
  Report Type: 
  Country: None (occurrence: None)
  Receive Date: 20070711
  Receipt Date: 20070705
  Transmission Date: 20080115
  Serious: Yes (Other)
  Sender: FDA-Public Use
  Company Number: B0478331A

PATIENT
  Age: 26 Year
  Sex: Female
  Weight: 72.5 kg

DRUGS (4)
  1. TRIZIVIR [Suspect]
     Indication: ANTIVIRAL PROPHYLAXIS
     Dosage: 750MG TWICE PER DAY
     Route: 048
     Dates: start: 20070426, end: 20070702
  2. ZIDOVUDINE [Suspect]
     Indication: ANTIVIRAL PROPHYLAXIS
     Route: 048
  3. VITAMIN CAP [Concomitant]
  4. FERROUS SULFATE [Concomitant]

REACTIONS (3)
  - ABDOMINAL PAIN [None]
  - INTRA-UTERINE DEATH [None]
  - POLYDACTYLY [None]
